FAERS Safety Report 21508062 (Version 1)
Quarter: 2022Q4

REPORT INFORMATION
  Report Type: Other
  Country: PK (occurrence: None)
  Receive Date: 20221026
  Receipt Date: 20221026
  Transmission Date: 20230113
  Serious: Yes (Other)
  Sender: FDA-Public Use
  Company Number: PK-ROCHE-3203245

PATIENT
  Age: 21 Year
  Sex: Female

DRUGS (1)
  1. RITUXIMAB [Suspect]
     Active Substance: RITUXIMAB
     Indication: Follicular lymphoma
     Route: 041
     Dates: start: 20221010

REACTIONS (1)
  - Lymphoma transformation [Unknown]
